FAERS Safety Report 7564730-5 (Version None)
Quarter: 2011Q2

REPORT INFORMATION
  Report Type: 
  Country: None (occurrence: None)
  Receive Date: 20110622
  Receipt Date: 20101108
  Transmission Date: 20111010
  Serious: Yes (Other)
  Sender: FDA-Public Use
  Company Number: US-MYLANLABS-2010S1018418

PATIENT
  Age: 60 Year
  Sex: Male

DRUGS (9)
  1. CLOZAPINE [Suspect]
     Route: 048
     Dates: start: 20100901, end: 20101005
  2. CLOZAPINE [Suspect]
     Route: 048
     Dates: start: 20101012, end: 20101101
  3. ZOCOR [Concomitant]
     Route: 048
  4. CLOZAPINE [Suspect]
     Route: 048
     Dates: start: 20101101
  5. SYNTHROID [Concomitant]
     Route: 048
  6. LORAZEPAM [Concomitant]
     Route: 048
  7. CYMBALTA [Concomitant]
     Route: 048
  8. DIVALPROEX SODIUM EXTENDED RELEASE [Concomitant]
     Route: 048
  9. LASIX [Concomitant]
     Route: 048

REACTIONS (1)
  - GRANULOCYTOPENIA [None]
